FAERS Safety Report 17129975 (Version 5)
Quarter: 2020Q1

REPORT INFORMATION
  Report Type: Spontaneous
  Country: CA (occurrence: CA)
  Receive Date: 20191209
  Receipt Date: 20200122
  Transmission Date: 20200409
  Serious: Yes (Disabling, Other)
  Sender: FDA-Public Use
  Company Number: CA-PFIZER INC-2019467323

PATIENT
  Age: 36 Year
  Sex: Female
  Weight: 87 kg

DRUGS (8)
  1. RITUXAN [Concomitant]
     Active Substance: RITUXIMAB
     Dosage: 100 MG, SINGLE
     Dates: start: 201903
  2. METHOTREXATE SODIUM. [Suspect]
     Active Substance: METHOTREXATE SODIUM
     Dosage: UNK
     Route: 058
     Dates: start: 199312
  3. METHOTREXATE SODIUM. [Suspect]
     Active Substance: METHOTREXATE SODIUM
     Indication: RHEUMATOID ARTHRITIS
     Dosage: UNK
     Route: 058
     Dates: start: 199303
  4. RITUXAN [Concomitant]
     Active Substance: RITUXIMAB
     Indication: RHEUMATOID ARTHRITIS
     Dosage: 1000 MG, UNK
     Route: 042
     Dates: start: 20160322
  5. RITUXAN [Concomitant]
     Active Substance: RITUXIMAB
     Dosage: 1000 MG, UNK
     Route: 042
     Dates: start: 2019
  6. PREDNISONE. [Concomitant]
     Active Substance: PREDNISONE
     Dosage: UNK (5)
  7. METHOTREXATE SODIUM. [Suspect]
     Active Substance: METHOTREXATE SODIUM
     Indication: RHEUMATOID ARTHRITIS
     Dosage: 25 MG, WEEKLY
     Route: 048
     Dates: start: 200304
  8. RITUXAN [Concomitant]
     Active Substance: RITUXIMAB
     Dosage: 1000 MG, UNK
     Dates: start: 20170322

REACTIONS (4)
  - Upper motor neurone lesion [Not Recovered/Not Resolved]
  - Off label use [Unknown]
  - Loss of personal independence in daily activities [Unknown]
  - Product use issue [Unknown]

NARRATIVE: CASE EVENT DATE: 199303
